FAERS Safety Report 6064177-7 (Version None)
Quarter: 2009Q1

REPORT INFORMATION
  Report Type: 
  Country: None (occurrence: None)
  Receive Date: 20090204
  Receipt Date: 20090123
  Transmission Date: 20090719
  Serious: Yes (Other)
  Sender: FDA-Public Use
  Company Number: JP-PFIZER INC-2009161908

PATIENT

DRUGS (2)
  1. SULPERAZON [Suspect]
     Route: 042
  2. DRUG, UNSPECIFIED [Concomitant]

REACTIONS (1)
  - BLOOD AMYLASE INCREASED [None]
